FAERS Safety Report 7813548-4 (Version None)
Quarter: 2011Q4

REPORT INFORMATION
  Report Type: 
  Country: None (occurrence: None)
  Receive Date: 20111014
  Receipt Date: 20111006
  Transmission Date: 20120403
  Serious: No
  Sender: FDA-Public Use
  Company Number: US-BIOGENIDEC-2011BI038491

PATIENT
  Age: 50 Year
  Sex: Female

DRUGS (2)
  1. TYSABRI [Suspect]
     Indication: MULTIPLE SCLEROSIS
     Route: 042
     Dates: start: 20110826
  2. FLU SHOT [Concomitant]
     Indication: ANTIVIRAL PROPHYLAXIS

REACTIONS (7)
  - BALANCE DISORDER [None]
  - VISUAL IMPAIRMENT [None]
  - STRESS [None]
  - POOR VENOUS ACCESS [None]
  - ARTHROPOD BITE [None]
  - BRONCHITIS [None]
  - NAUSEA [None]
